FAERS Safety Report 5042490-X (Version None)
Quarter: 2006Q2

REPORT INFORMATION
  Report Type: 
  Country: None (occurrence: None)
  Receive Date: 20060627
  Receipt Date: 20060609
  Transmission Date: 20061013
  Serious: Yes (Hospitalization)
  Sender: FDA-Public Use
  Company Number: ES200603007174

PATIENT
  Age: 68 Year
  Sex: Female

DRUGS (7)
  1. FORTEO [Suspect]
     Indication: OSTEOPOROSIS
     Dosage: 20 UG, DAILY (1/D), SUBCUTANEOUS
     Route: 058
     Dates: start: 20050926
  2. FORTEO [Concomitant]
  3. CORTISONE [Concomitant]
  4. TRYPTIZOL (AMITRIPTYLINE HYDROCHLORIDE) [Concomitant]
  5. ANAGASTRA (PANTOPRAZOLE SODIUM) [Concomitant]
  6. ATERAX (HYDROXYZINE HYDROCHLORIDE) [Concomitant]
  7. NATECAL (CALCIUM CARBONATE) [Concomitant]

REACTIONS (5)
  - CHILLS [None]
  - HEADACHE [None]
  - LUNG INFECTION [None]
  - PYREXIA [None]
  - RESPIRATORY FAILURE [None]
